FAERS Safety Report 5105207-6 (Version None)
Quarter: 2006Q3

REPORT INFORMATION
  Report Type: 
  Country: None (occurrence: None)
  Receive Date: 20060911
  Receipt Date: 20060822
  Transmission Date: 20061208
  Serious: Yes (Hospitalization)
  Sender: FDA-Public Use
  Company Number: US200608004761

PATIENT
  Sex: Male

DRUGS (2)
  1. HUMALOG 25% LISPRO 75%, 75% NPL (LISPRO 25% LISPRO, 75% NPL) PEN, DISP [Suspect]
     Indication: DIABETES MELLITUS
  2. HUMALOG MIX 25L / 75NPL PEN (HUMALOG MIX 25L / 75NPL PEN) [Concomitant]

REACTIONS (2)
  - ORTHOPEDIC PROCEDURE [None]
  - SURGERY [None]
